FAERS Safety Report 10395996 (Version 1)
Quarter: 2014Q1

REPORT INFORMATION
  Report Type: Spontaneous
  Country: US (occurrence: None)
  Receive Date: 20130107
  Receipt Date: 20130107
  Transmission Date: 20141002
  Serious: Yes (Other)
  Sender: FDA-Public Use
  Company Number: PHEH2012US009357

PATIENT
  Age: 59 Year
  Sex: Female
  Weight: 72.6 kg

DRUGS (6)
  1. GILENYA (FTY) CAPSULE, 0.5MG [Suspect]
     Indication: MULTIPLE SCLEROSIS
     Route: 048
     Dates: start: 20120706
  2. VITAMIN D (ERGOCALIFEROL) [Concomitant]
  3. THIAZIDE DERIVATIVES (NO INGREDIENTS/SUBSTANCES) [Concomitant]
  4. VESICARE (SOLIFENACIN) [Concomitant]
  5. BACLOFEN (BACLOFEN) [Concomitant]
  6. ASA (ACETYLSALICLIC ACID) [Concomitant]

REACTIONS (2)
  - White blood cell count decreased [None]
  - Hepatic enzyme increased [None]
